FAERS Safety Report 7725313-7 (Version None)
Quarter: 2011Q3

REPORT INFORMATION
  Report Type: 
  Country: None (occurrence: None)
  Receive Date: 20110902
  Receipt Date: 20110310
  Transmission Date: 20111222
  Serious: Yes (Other)
  Sender: FDA-Public Use
  Company Number: US-BAYER-2011-026848

PATIENT
  Sex: Female

DRUGS (2)
  1. YAZ [Suspect]
  2. ASACOL [Concomitant]
     Dosage: UNK

REACTIONS (1)
  - PANCREATITIS [None]
